FAERS Safety Report 25274282 (Version 3)
Quarter: 2025Q2

REPORT INFORMATION
  Report Type: Report from Study
  Country: US (occurrence: US)
  Receive Date: 20250506
  Receipt Date: 20250522
  Transmission Date: 20250716
  Serious: Yes (Other)
  Sender: ABBVIE
  Company Number: US-ABBVIE-6266203

PATIENT
  Age: 73 Year
  Sex: Female

DRUGS (5)
  1. IMBRUVICA [Suspect]
     Active Substance: IBRUTINIB
     Indication: Product used for unknown indication
     Route: 048
  2. BRUKINSA [Suspect]
     Active Substance: ZANUBRUTINIB
     Indication: Chronic lymphocytic leukaemia
     Route: 048
     Dates: start: 20240903
  3. GAMMAGARD [Suspect]
     Active Substance: HUMAN IMMUNOGLOBULIN G
     Indication: Product used for unknown indication
     Route: 065
  4. RITUXAN [Concomitant]
     Active Substance: RITUXIMAB
     Indication: Product used for unknown indication
  5. PIROXICAM [Concomitant]
     Active Substance: PIROXICAM
     Indication: Product used for unknown indication

REACTIONS (42)
  - Large intestinal obstruction [Unknown]
  - Volvulus [Unknown]
  - Cholecystectomy [Unknown]
  - Muscle disorder [Unknown]
  - Bursitis [Unknown]
  - Osteoarthritis [Unknown]
  - Gait disturbance [Unknown]
  - White blood cell count abnormal [Unknown]
  - Haemoglobin abnormal [Unknown]
  - Blood immunoglobulin G abnormal [Unknown]
  - Haemoglobin decreased [Unknown]
  - Flatulence [Unknown]
  - Gastrointestinal sounds abnormal [Unknown]
  - Myalgia [Unknown]
  - Asthenia [Unknown]
  - Dizziness [Unknown]
  - Musculoskeletal discomfort [Unknown]
  - Limb discomfort [Unknown]
  - Back disorder [Unknown]
  - Bone disorder [Unknown]
  - Compression fracture [Unknown]
  - Diarrhoea [Unknown]
  - Joint stiffness [Unknown]
  - Stomatitis [Unknown]
  - Eye disorder [Unknown]
  - Arthralgia [Unknown]
  - Blood glucose increased [Unknown]
  - Paranasal sinus discomfort [Unknown]
  - Nasal discomfort [Unknown]
  - Sciatica [Unknown]
  - Illness anxiety disorder [Unknown]
  - Intestinal obstruction [Unknown]
  - Fatigue [Unknown]
  - Platelet count decreased [Unknown]
  - White blood cell count decreased [Unknown]
  - Muscle spasms [Unknown]
  - Sacral pain [Unknown]
  - Seasonal allergy [Unknown]
  - Rhinalgia [Unknown]
  - Weight fluctuation [Unknown]
  - Headache [Unknown]
  - Tracheomalacia [Unknown]

NARRATIVE: CASE EVENT DATE: 20241101
